FAERS Safety Report 5405876-7 (Version None)
Quarter: 2007Q3

REPORT INFORMATION
  Report Type: 
  Country: None (occurrence: None)
  Receive Date: 20070806
  Receipt Date: 20070726
  Transmission Date: 20080115
  Serious: Yes (Other)
  Sender: FDA-Public Use
  Company Number: US-AMGEN-US236027

PATIENT
  Sex: Male

DRUGS (7)
  1. ENBREL [Suspect]
     Indication: RHEUMATOID ARTHRITIS
     Route: 058
     Dates: start: 20030220
  2. PREDNISONE TAB [Suspect]
     Route: 048
  3. PLAQUENIL [Suspect]
     Route: 048
  4. METHOTREXATE [Suspect]
     Route: 048
     Dates: start: 19970101
  5. ATENOLOL [Concomitant]
     Route: 065
  6. VASOTEC [Concomitant]
     Route: 065
  7. PREVACID [Concomitant]
     Route: 065

REACTIONS (1)
  - COCCIDIOIDOMYCOSIS [None]
